FAERS Safety Report 16864459 (Version 4)
Quarter: 2020Q1

REPORT INFORMATION
  Report Type: Report from Study
  Country: None (occurrence: CA)
  Receive Date: 20190928
  Receipt Date: 20200312
  Transmission Date: 20200409
  Serious: Yes (Hospitalization, Other)
  Sender: FDA-Public Use
  Company Number: CA-ABBVIE-19K-028-2943424-00

PATIENT
  Sex: Female

DRUGS (1)
  1. HUMIRA [Suspect]
     Active Substance: ADALIMUMAB
     Indication: CROHN^S DISEASE
     Route: 058
     Dates: start: 20120712, end: 201812

REACTIONS (5)
  - Malaise [Recovered/Resolved]
  - Surgery [Unknown]
  - Malaise [Unknown]
  - Gastrointestinal disorder [Not Recovered/Not Resolved]
  - Ileostomy [Unknown]

NARRATIVE: CASE EVENT DATE: 2019
